FAERS Safety Report 7318832-9 (Version None)
Quarter: 2011Q1

REPORT INFORMATION
  Report Type: 
  Country: None (occurrence: None)
  Receive Date: 20110228
  Receipt Date: 20101001
  Transmission Date: 20110831
  Serious: No
  Sender: FDA-Public Use
  Company Number: A0876161A

PATIENT
  Age: 56 Year
  Sex: Female

DRUGS (4)
  1. SUMATRIPTAN SUCCINATE [Suspect]
     Indication: MIGRAINE
     Route: 058
     Dates: start: 20100101
  2. IMITREX [Suspect]
     Indication: MIGRAINE
     Route: 058
  3. CLONAZEPAM [Concomitant]
     Dosage: .25MG AT NIGHT
     Route: 048
  4. CYMBALTA [Concomitant]
     Dosage: 30MG AT NIGHT
     Route: 048

REACTIONS (2)
  - DRUG INEFFECTIVE [None]
  - PRODUCT QUALITY ISSUE [None]
